FAERS Safety Report 11022513 (Version 1)
Quarter: 2015Q2

REPORT INFORMATION
  Report Type: Spontaneous
  Country: FR (occurrence: FR)
  Receive Date: 20150413
  Receipt Date: 20150413
  Transmission Date: 20150821
  Serious: Yes (Other)
  Sender: FDA-Public Use
  Company Number: FR-PFIZER INC-2015119997

PATIENT
  Age: 91 Year
  Sex: Female

DRUGS (3)
  1. NOVALDEX [Concomitant]
     Active Substance: TAMOXIFEN
     Indication: BREAST CANCER
     Dosage: UNK
  2. LOPRIL [Concomitant]
     Active Substance: LISINOPRIL
     Dosage: UNK
  3. TRIATEC [Suspect]
     Active Substance: RAMIPRIL
     Dosage: UNK
     Route: 065
     Dates: start: 201503

REACTIONS (7)
  - Blood alkaline phosphatase increased [Unknown]
  - Fatigue [Unknown]
  - Somnolence [Unknown]
  - Transaminases increased [Unknown]
  - Gamma-glutamyltransferase increased [Unknown]
  - Nausea [Unknown]
  - Vomiting [Unknown]

NARRATIVE: CASE EVENT DATE: 201503
